FAERS Safety Report 11372912 (Version 1)
Quarter: 2015Q3

REPORT INFORMATION
  Report Type: Spontaneous
  Country: US (occurrence: US)
  Receive Date: 20150811
  Receipt Date: 20150811
  Transmission Date: 20151125
  Serious: No
  Sender: FDA-Public Use
  Company Number: US-ELI_LILLY_AND_COMPANY-US201201000576

PATIENT
  Sex: Male
  Weight: 95.69 kg

DRUGS (2)
  1. ADCIRCA [Suspect]
     Active Substance: TADALAFIL
     Dosage: 10 MG, QD
     Dates: end: 20120123
  2. ADCIRCA [Suspect]
     Active Substance: TADALAFIL
     Indication: PULMONARY HYPERTENSION
     Dosage: 20 MG, QD
     Dates: start: 20111210

REACTIONS (3)
  - Wrong technique in product usage process [Recovered/Resolved]
  - Headache [Not Recovered/Not Resolved]
  - Drug prescribing error [Recovered/Resolved]
